FAERS Safety Report 9998257 (Version 2)
Quarter: 2014Q2

REPORT INFORMATION
  Report Type: Spontaneous
  Country: JP (occurrence: JP)
  Receive Date: 20140311
  Receipt Date: 20140404
  Transmission Date: 20141212
  Serious: Yes (Hospitalization)
  Sender: FDA-Public Use
  Company Number: JP-ROCHE-1360580

PATIENT
  Age: 83 Year
  Sex: Female

DRUGS (6)
  1. ROCEPHIN [Suspect]
     Indication: PNEUMONIA
     Route: 042
     Dates: start: 20131120, end: 20131129
  2. GENINAX [Suspect]
     Indication: PRODUCT USED FOR UNKNOWN INDICATION
     Route: 048
     Dates: start: 20131125, end: 20131129
  3. LIPIDIL [Suspect]
     Indication: PRODUCT USED FOR UNKNOWN INDICATION
     Route: 048
     Dates: end: 20131129
  4. LANSOPRAZOLE [Suspect]
     Indication: PRODUCT USED FOR UNKNOWN INDICATION
     Dosage: REPORTED AS : LANSOPRAZOLE-OD
     Route: 048
     Dates: end: 20131129
  5. AMLODIPINE [Concomitant]
     Route: 048
  6. MAINTATE [Concomitant]
     Route: 048

REACTIONS (1)
  - Interstitial lung disease [Recovering/Resolving]
